FAERS Safety Report 6728357-7 (Version None)
Quarter: 2010Q2

REPORT INFORMATION
  Report Type: 
  Country: None (occurrence: None)
  Receive Date: 20100512
  Receipt Date: 20100427
  Transmission Date: 20101027
  Serious: Yes (Hospitalization)
  Sender: FDA-Public Use
  Company Number: 8048459

PATIENT
  Sex: Female
  Weight: 72.1 kg

DRUGS (4)
  1. CERTOLIZUMAB PEGOL (UCB, INC) [Suspect]
     Indication: CROHN'S DISEASE
     Dosage: 400 MG, ONCE MONTHLY SUBCUTANEOUS
     Route: 058
     Dates: start: 20081009
  2. NAPROSYN [Concomitant]
  3. CELEBREX [Concomitant]
  4. VICODIN [Concomitant]

REACTIONS (13)
  - ABDOMINAL DISTENSION [None]
  - BONE PAIN [None]
  - CHEST PAIN [None]
  - CONTUSION [None]
  - FREQUENT BOWEL MOVEMENTS [None]
  - HAEMATOCRIT DECREASED [None]
  - HAEMOGLOBIN DECREASED [None]
  - INJECTION SITE HAEMATOMA [None]
  - INJECTION SITE REACTION [None]
  - PARAESTHESIA [None]
  - RED BLOOD CELL SEDIMENTATION RATE INCREASED [None]
  - UTERINE HAEMORRHAGE [None]
  - UTERINE PROLAPSE [None]
